FAERS Safety Report 14188241 (Version 1)
Quarter: 2017Q4

REPORT INFORMATION
  Report Type: Report from Study
  Country: BR (occurrence: BR)
  Receive Date: 20171114
  Receipt Date: 20171114
  Transmission Date: 20180321
  Serious: Yes (Hospitalization)
  Sender: FDA-Public Use
  Company Number: BR-BIOGEN-2017BI00482250

PATIENT
  Age: 52 Year

DRUGS (1)
  1. TYSABRI [Suspect]
     Active Substance: NATALIZUMAB
     Indication: MULTIPLE SCLEROSIS
     Route: 042
     Dates: start: 201405

REACTIONS (3)
  - Hernia [Recovered/Resolved]
  - Infection [Recovered/Resolved]
  - Gallbladder operation [Recovered/Resolved]

NARRATIVE: CASE EVENT DATE: 20170905
